FAERS Safety Report 5161760-8 (Version None)
Quarter: 2006Q4

REPORT INFORMATION
  Report Type: 
  Country: None (occurrence: None)
  Receive Date: 20061130
  Receipt Date: 20061124
  Transmission Date: 20070319
  Serious: Yes (Other)
  Sender: FDA-Public Use
  Company Number: GB-GLAXOSMITHKLINE-B0448770A

PATIENT
  Age: 21 Year
  Sex: Female

DRUGS (1)
  1. RANITIDINE [Suspect]
     Indication: SMALL INTESTINE CARCINOMA
     Dosage: 150MG TWICE PER DAY
     Dates: start: 20061015, end: 20061028

REACTIONS (2)
  - BURNING SENSATION [None]
  - RASH PRURITIC [None]
